FAERS Safety Report 15888125 (Version 1)
Quarter: 2019Q1

REPORT INFORMATION
  Report Type: Spontaneous
  Country: US (occurrence: US)
  Receive Date: 20190130
  Receipt Date: 20190130
  Transmission Date: 20190417
  Serious: Yes (Other)
  Sender: FDA-Public Use
  Company Number: US-009507513-1901USA008907

PATIENT
  Age: 30 Year
  Sex: Female
  Weight: 59.05 kg

DRUGS (5)
  1. CIPRO [Concomitant]
     Active Substance: CIPROFLOXACIN HYDROCHLORIDE
     Dosage: 1 TABLET EVERY 12 HOURS DAILY
     Route: 048
     Dates: start: 20161205
  2. CYMBALTA [Concomitant]
     Active Substance: DULOXETINE HYDROCHLORIDE
     Dosage: 1 CAPSULE DAILY
     Dates: start: 20160822
  3. TRAZODONE HYDROCHLORIDE. [Concomitant]
     Active Substance: TRAZODONE HYDROCHLORIDE
     Dosage: 1 TABLET AT BEDTIME
     Route: 048
  4. LYRICA [Suspect]
     Active Substance: PREGABALIN
     Indication: NEURALGIA
     Dosage: 1 CAPSULE TWICE DAILY
     Route: 048
     Dates: start: 20140918, end: 201605
  5. REMERON [Suspect]
     Active Substance: MIRTAZAPINE
     Indication: MAJOR DEPRESSION
     Dosage: UNK
     Route: 048

REACTIONS (7)
  - Feeling abnormal [Unknown]
  - Fatigue [Unknown]
  - Post-traumatic stress disorder [Unknown]
  - Fibromyalgia [Unknown]
  - Seizure [Unknown]
  - Suicidal ideation [Unknown]
  - Drug ineffective [Unknown]
